FAERS Safety Report 15187227 (Version 2)
Quarter: 2019Q1

REPORT INFORMATION
  Report Type: Report from Study
  Country: US (occurrence: US)
  Receive Date: 20180723
  Receipt Date: 20190130
  Transmission Date: 20190417
  Serious: No
  Sender: FDA-Public Use
  Company Number: US-EXELIXIS-CABO-18012346

PATIENT
  Age: 68 Year
  Sex: Male

DRUGS (9)
  1. DILTIAZEM. [Concomitant]
     Active Substance: DILTIAZEM
  2. CABOMETYX [Suspect]
     Active Substance: CABOZANTINIB S-MALATE
     Dosage: 20 MG, QD ALTERNATING WITH 40MG QD
     Route: 048
     Dates: start: 201807, end: 201809
  3. INSULIN [Concomitant]
     Active Substance: INSULIN NOS
  4. CABOMETYX [Suspect]
     Active Substance: CABOZANTINIB S-MALATE
     Indication: RENAL CANCER
     Dosage: 60 MG, QD
     Route: 048
     Dates: start: 20170512, end: 201705
  5. SUDAFED 12 HOUR [Concomitant]
     Active Substance: PSEUDOEPHEDRINE HYDROCHLORIDE
  6. CABOMETYX [Suspect]
     Active Substance: CABOZANTINIB S-MALATE
     Dosage: 20 MG, QD ALTERNATING WITH 40MG QD
     Route: 048
     Dates: start: 201705, end: 2017
  7. CABOMETYX [Suspect]
     Active Substance: CABOZANTINIB S-MALATE
     Dosage: 20 MG, QD ALTERNATING WITH 40MG QD
     Route: 048
     Dates: start: 20171221, end: 201807
  8. CREON [Concomitant]
     Active Substance: PANCRELIPASE AMYLASE\PANCRELIPASE LIPASE\PANCRELIPASE PROTEASE
  9. CETIRIZINE [Concomitant]
     Active Substance: CETIRIZINE HYDROCHLORIDE

REACTIONS (11)
  - Dysgeusia [Unknown]
  - Decreased appetite [Not Recovered/Not Resolved]
  - Lymphatic system neoplasm [Unknown]
  - Skin ulcer [Unknown]
  - Nail discolouration [Unknown]
  - Abdominal distension [Unknown]
  - Diarrhoea [Unknown]
  - Abdominal discomfort [Unknown]
  - Weight decreased [Not Recovered/Not Resolved]
  - Euphoric mood [Unknown]
  - Enteritis [Unknown]

NARRATIVE: CASE EVENT DATE: 201705
